FAERS Safety Report 24667813 (Version 1)
Quarter: 2024Q4

REPORT INFORMATION
  Report Type: Report from Study
  Country: CA (occurrence: CA)
  Receive Date: 20241127
  Receipt Date: 20241127
  Transmission Date: 20250115
  Serious: Yes (Other)
  Sender: ABBVIE
  Company Number: CA-ABBVIE-6014689

PATIENT
  Age: 53 Year
  Sex: Male

DRUGS (1)
  1. SKYRIZI [Suspect]
     Active Substance: RISANKIZUMAB-RZAA
     Indication: Psoriasis
     Route: 058
     Dates: start: 20240730

REACTIONS (3)
  - Skin cancer [Unknown]
  - Hepatic cirrhosis [Unknown]
  - Hepatic cancer [Unknown]

NARRATIVE: CASE EVENT DATE: 20240101
